FAERS Safety Report 8826557 (Version 3)
Quarter: 2012Q4

REPORT INFORMATION
  Report Type: 
  Country: JP (occurrence: JP)
  Receive Date: 20121005
  Receipt Date: 20121122
  Transmission Date: 20130627
  Serious: Yes (Death, Other)
  Sender: FDA-Public Use
  Company Number: PHHY2012JP086762

PATIENT
  Age: 29 Year
  Sex: Female
  Weight: 54 kg

DRUGS (8)
  1. DOXORUBICIN HYDROCHLORIDE [Suspect]
     Indication: BONE SARCOMA
     Dosage: 46 mg, UNK
     Route: 042
     Dates: start: 20120717, end: 20120717
  2. DOXORUBICIN HYDROCHLORIDE [Suspect]
     Dosage: 46 mg, UNK
     Route: 042
     Dates: start: 20120823, end: 20120823
  3. BRIPLATIN [Suspect]
     Indication: BONE SARCOMA
     Dosage: 195 mg
     Route: 042
     Dates: start: 20120717, end: 20120717
  4. BRIPLATIN [Suspect]
     Dosage: 187 mg, UNK
     Route: 042
     Dates: start: 20120823, end: 20120823
  5. GRAN [Suspect]
     Indication: NEUTROPENIA
     Dosage: 75 ug, UNK
     Route: 058
     Dates: start: 20120725
  6. GRAN [Suspect]
     Dosage: 225 ug, UNK
     Route: 042
     Dates: start: 20120831
  7. METHOTREXATE [Concomitant]
     Indication: BONE SARCOMA
     Dosage: 16.1 g, UNK
     Dates: start: 20120807
  8. METHOTREXATE [Concomitant]
     Dosage: 15.9 g, UNK
     Dates: start: 20120814

REACTIONS (23)
  - Septic shock [Fatal]
  - Sepsis [Fatal]
  - Shock [Fatal]
  - Pyrexia [Fatal]
  - Pseudomonas infection [Fatal]
  - Loss of consciousness [Fatal]
  - Pulmonary embolism [Unknown]
  - Dyspnoea [Unknown]
  - Oxygen saturation decreased [Unknown]
  - Stomatitis haemorrhagic [Unknown]
  - Melaena [Unknown]
  - Confusional state [Unknown]
  - Diarrhoea [Unknown]
  - Cardiovascular insufficiency [Unknown]
  - Cardio-respiratory arrest [Unknown]
  - Bradycardia [Unknown]
  - Ventricular fibrillation [Unknown]
  - Renal failure acute [Unknown]
  - Renal impairment [Unknown]
  - Back pain [Unknown]
  - Oliguria [Unknown]
  - Platelet count decreased [Unknown]
  - Neutropenia [Unknown]
